FAERS Safety Report 9760793 (Version 2)
Quarter: 2014Q1

REPORT INFORMATION
  Report Type: Spontaneous
  Country: FR (occurrence: FR)
  Receive Date: 20131216
  Receipt Date: 20140110
  Transmission Date: 20141002
  Serious: Yes (Hospitalization)
  Sender: FDA-Public Use
  Company Number: FR-BRISTOL-MYERS SQUIBB COMPANY-19892512

PATIENT
  Age: 52 Year
  Sex: Female

DRUGS (2)
  1. YERVOY [Suspect]
     Dosage: 30AUG13,20SEP13 AND 11-OCT13
     Route: 042
     Dates: start: 20130809
  2. FOTEMUSTINE [Suspect]
     Dosage: 06-MAY-2013, 13-MAY-2013, 12-JUN-2013 AND 08-JUL-2013?1 DF : 5 INJECTIONS?SOL FOR PARENTERAL USE
     Route: 042
     Dates: start: 20130429

REACTIONS (2)
  - Visual acuity reduced [Unknown]
  - Papilloedema [Unknown]
